FAERS Safety Report 21545794 (Version 7)
Quarter: 2023Q1

REPORT INFORMATION
  Report Type: Report from Study
  Country: US (occurrence: US)
  Receive Date: 20221103
  Receipt Date: 20230321
  Transmission Date: 20230417
  Serious: No
  Sender: FDA-Public Use
  Company Number: US-002147023-NVSC2022US247465

PATIENT
  Sex: Female

DRUGS (2)
  1. COSENTYX [Suspect]
     Active Substance: SECUKINUMAB
     Indication: Psoriasis
     Dosage: 300 MG, QW
     Route: 058
  2. COSENTYX [Suspect]
     Active Substance: SECUKINUMAB
     Dosage: 300 MG, QMO
     Route: 058

REACTIONS (11)
  - Abdominal discomfort [Unknown]
  - Vitamin B complex deficiency [Unknown]
  - Vitamin D deficiency [Unknown]
  - Depression [Unknown]
  - Rash [Unknown]
  - Diarrhoea [Unknown]
  - Psoriasis [Unknown]
  - Nail pitting [Not Recovered/Not Resolved]
  - Skin mass [Unknown]
  - Pruritus [Unknown]
  - Therapeutic product effect incomplete [Unknown]
